FAERS Safety Report 4518286-1 (Version None)
Quarter: 2004Q4

REPORT INFORMATION
  Report Type: 
  Country: None (occurrence: None)
  Receive Date: 20041130
  Receipt Date: 20041122
  Transmission Date: 20050328
  Serious: Yes (Hospitalization)
  Sender: FDA-Public Use
  Company Number: TPA2004A01448

PATIENT
  Age: 81 Year
  Sex: Male
  Weight: 99.7913 kg

DRUGS (2)
  1. ACTOS [Suspect]
     Indication: DIABETES MELLITUS
     Dosage: PER ORAL
     Route: 048
  2. INSULIN [Concomitant]

REACTIONS (1)
  - URINARY TRACT INFECTION [None]
